FAERS Safety Report 8854876 (Version 1)
Quarter: 2012Q4

REPORT INFORMATION
  Report Type: 
  Country: US (occurrence: US)
  Receive Date: 20121023
  Receipt Date: 20121023
  Transmission Date: 20130627
  Serious: Yes (Hospitalization)
  Sender: FDA-Public Use
  Company Number: US-ROXANE LABORATORIES, INC.-2012-RO-02016RO

PATIENT
  Age: 17 Month
  Sex: Female

DRUGS (2)
  1. OXCARBAZEPINE [Suspect]
     Indication: COMPLEX PARTIAL SEIZURES
  2. LEVETIRACETAM [Suspect]
     Indication: COMPLEX PARTIAL SEIZURES

REACTIONS (2)
  - Infantile spasms [Recovered/Resolved]
  - Drug ineffective [Recovered/Resolved]
